FAERS Safety Report 5985880-0 (Version None)
Quarter: 2008Q4

REPORT INFORMATION
  Report Type: 
  Country: None (occurrence: None)
  Receive Date: 20081209
  Receipt Date: 20081201
  Transmission Date: 20090506
  Serious: Yes (Hospitalization)
  Sender: FDA-Public Use
  Company Number: JP-RANBAXY-2008RR-19647

PATIENT
  Age: 40 Year
  Sex: Female

DRUGS (6)
  1. GLIMEPIRIDE [Suspect]
     Indication: TYPE 2 DIABETES MELLITUS
     Dosage: 1 MG, QD
  2. PIOGLITAZONE [Concomitant]
  3. GLYBURIDE [Concomitant]
  4. GLICLAZIDE [Concomitant]
  5. INSULIN [Concomitant]
     Indication: HYPERGLYCAEMIA
  6. BUFORMIN [Concomitant]

REACTIONS (1)
  - ASTHMA [None]
